FAERS Safety Report 4768323-4 (Version None)
Quarter: 2005Q3

REPORT INFORMATION
  Report Type: 
  Country: None (occurrence: None)
  Receive Date: 20050906
  Receipt Date: 20050708
  Transmission Date: 20060218
  Serious: No
  Sender: FDA-Public Use
  Company Number: 2005-BP-11558BP

PATIENT
  Sex: Male

DRUGS (6)
  1. SPIRIVA [Suspect]
     Indication: CHRONIC OBSTRUCTIVE PULMONARY DISEASE
     Dosage: 18 MCG (18 MCG, QD), IH
     Route: 055
     Dates: start: 20050620
  2. METHYLPRED [Concomitant]
  3. METHOTREXATE [Concomitant]
  4. VOSPIRE(SALBUTAMOL SULFATE) [Concomitant]
  5. ATENOLOL [Concomitant]
  6. PROTONIX [Concomitant]

REACTIONS (2)
  - ARTHRALGIA [None]
  - RHEUMATOID ARTHRITIS [None]
